FAERS Safety Report 9478618 (Version 2)
Quarter: 2013Q3

REPORT INFORMATION
  Report Type: Spontaneous
  Country: US (occurrence: US)
  Receive Date: 20130827
  Receipt Date: 20130924
  Transmission Date: 20140515
  Serious: Yes (Other)
  Sender: FDA-Public Use
  Company Number: US-TEVA-428505USA

PATIENT
  Age: 23 Year
  Sex: Female
  Weight: 69.92 kg

DRUGS (2)
  1. PARAGARD 380A [Suspect]
     Indication: CONTRACEPTION
     Route: 015
     Dates: start: 20130613, end: 20130726
  2. PRENATAL VITAMIN [Concomitant]

REACTIONS (1)
  - Device dislocation [Recovered/Resolved]
